FAERS Safety Report 10946321 (Version 1)
Quarter: 2015Q1

REPORT INFORMATION
  Report Type: Spontaneous
  Country: None (occurrence: None)
  Receive Date: 20150225
  Receipt Date: 20150225
  Transmission Date: 20150721
  Serious: Yes (Hospitalization)
  Sender: FDA-Public Use
  Company Number: TT099-14

PATIENT
  Sex: Female

DRUGS (2)
  1. T.R.U.E. TEST [Suspect]
     Active Substance: ALLERGEN PATCH TEST
     Indication: DERMATITIS
     Dosage: EPICUTANEOUS TEST
  2. T.R.U.E. TEST [Suspect]
     Active Substance: ALLERGEN PATCH TEST
     Indication: HYPERSENSITIVITY
     Dosage: EPICUTANEOUS TEST

REACTIONS (1)
  - Anaphylactic reaction [None]
